FAERS Safety Report 4600101-9 (Version None)
Quarter: 2005Q1

REPORT INFORMATION
  Report Type: 
  Country: None (occurrence: None)
  Receive Date: 20050303
  Receipt Date: 20050222
  Transmission Date: 20050727
  Serious: No
  Sender: FDA-Public Use
  Company Number: Z002-301-4-0022

PATIENT
  Age: 64 Year
  Sex: Male

DRUGS (14)
  1. ZONEGRAN [Suspect]
     Indication: PARKINSON'S DISEASE
     Dosage: 100 MG, 1 IN 1 D, ORAL
     Route: 048
     Dates: start: 20040123, end: 20050217
  2. ZONEGRAN [Suspect]
     Indication: PARKINSON'S DISEASE
     Dosage: SEE IMAGE
     Route: 048
     Dates: start: 20030124, end: 20030206
  3. ZONEGRAN [Suspect]
     Indication: PARKINSON'S DISEASE
     Dosage: SEE IMAGE
     Route: 048
     Dates: start: 20030207, end: 20040122
  4. ZONEGRAN [Suspect]
     Indication: PARKINSON'S DISEASE
     Dosage: 50 MG, 1 IN 1 D, ORAL
     Route: 048
     Dates: start: 20020920, end: 20021212
  5. SINEMET [Concomitant]
  6. SYMMETREL [Concomitant]
  7. PARLODEL [Concomitant]
  8. MUCOSTA (REBAMIPIDE) [Concomitant]
  9. LUVOX [Concomitant]
  10. MS ONSHIPPU [Concomitant]
  11. EVIPROSTAT (EVIPROSTAT) [Concomitant]
  12. HARNAL (TAMSULOSIN HYDROCHLORIDE) [Concomitant]
  13. BUP-4 (PROPIVERINE HYDROCHLORIDE) [Concomitant]
  14. BENECID (PROBENECID) [Concomitant]

REACTIONS (4)
  - ABDOMINAL PAIN LOWER [None]
  - CALCULUS URINARY [None]
  - DRUG INEFFECTIVE [None]
  - PROSTATE CANCER [None]
